FAERS Safety Report 14530730 (Version 1)
Quarter: 2018Q1

REPORT INFORMATION
  Report Type: Spontaneous
  Country: US (occurrence: US)
  Receive Date: 20180213
  Receipt Date: 20180213
  Transmission Date: 20180509
  Serious: No
  Sender: FDA-Public Use
  Company Number: None

PATIENT
  Age: 7 Year
  Sex: Female

DRUGS (1)
  1. TAMIFLU [Suspect]
     Active Substance: OSELTAMIVIR PHOSPHATE
     Indication: INFLUENZA
     Dosage: ?          QUANTITY:12.5 ML;?
     Route: 048

REACTIONS (4)
  - Vomiting [None]
  - Dizziness [None]
  - Vertigo [None]
  - Headache [None]

NARRATIVE: CASE EVENT DATE: 20180211
